FAERS Safety Report 9005597 (Version 2)
Quarter: 2013Q1

REPORT INFORMATION
  Report Type: Spontaneous
  Country: US (occurrence: US)
  Receive Date: 20130109
  Receipt Date: 20130201
  Transmission Date: 20140127
  Serious: Yes (Hospitalization, Disabling, Other)
  Sender: FDA-Public Use
  Company Number: US-009507513-2010SP045172

PATIENT
  Sex: Female
  Weight: 70.31 kg

DRUGS (1)
  1. NUVARING [Suspect]
     Indication: CONTRACEPTION
     Dates: start: 200706, end: 20080825

REACTIONS (6)
  - Hepatic lesion [Not Recovered/Not Resolved]
  - Pulmonary embolism [Recovered/Resolved]
  - Anxiety [Recovered/Resolved]
  - Pulmonary mass [Recovered/Resolved]
  - Headache [Unknown]
  - Hypertension [Unknown]
